FAERS Safety Report 19636478 (Version 2)
Quarter: 2021Q3

REPORT INFORMATION
  Report Type: Report from Study
  Country: AU (occurrence: AU)
  Receive Date: 20210730
  Receipt Date: 20210907
  Transmission Date: 20211014
  Serious: Yes (Hospitalization)
  Sender: FDA-Public Use
  Company Number: AU-AMGEN-AUSCT2021115792

PATIENT
  Age: 33 Year
  Sex: Female

DRUGS (10)
  1. MAXIDEX [Concomitant]
     Active Substance: DEXAMETHASONE
     Indication: UVEITIS
     Dosage: 4 DROPS, QD
     Route: 047
     Dates: start: 20210720, end: 20210728
  2. MAXIDEX [Concomitant]
     Active Substance: DEXAMETHASONE
     Dosage: 3 DROPS, QD
     Route: 047
     Dates: start: 20210729
  3. PHENERGAN [Concomitant]
     Active Substance: PROMETHAZINE HYDROCHLORIDE
     Indication: RASH
     Dosage: 50 MILLIGRAM, QD
     Route: 048
     Dates: start: 20210705
  4. IPILIMUMAB [Suspect]
     Active Substance: IPILIMUMAB
     Indication: MALIGNANT MELANOMA
     Dosage: 344 MILLIGRAM
     Route: 042
     Dates: start: 20210624
  5. VIT D [COLECALCIFEROL] [Concomitant]
     Indication: VITAMIN D DECREASED
     Dosage: 1000 INTERNATIONAL UNIT, QD
     Route: 048
     Dates: start: 20210617
  6. NIVOLUMAB [Suspect]
     Active Substance: NIVOLUMAB
     Indication: MALIGNANT MELANOMA
     Dosage: 115 MILLIGRAM
     Route: 042
     Dates: start: 20210624
  7. ANTROQUORIL [Concomitant]
     Indication: RASH
     Dosage: UNK UNK, QD
     Route: 061
     Dates: start: 20210705
  8. DENOSUMAB [Suspect]
     Active Substance: DENOSUMAB
     Indication: MALIGNANT MELANOMA
     Dosage: 120 MILLIGRAM
     Route: 058
     Dates: start: 20210624
  9. VENTOLIN [Concomitant]
     Active Substance: ALBUTEROL SULFATE
     Indication: ASTHMA
     Dosage: 2 PUFFS, QD
     Dates: start: 1994
  10. PANTOPRAZOLE [Concomitant]
     Active Substance: PANTOPRAZOLE
     Indication: PROPHYLAXIS
     Dosage: 40 MILLIGRAM
     Route: 048
     Dates: start: 20210723

REACTIONS (1)
  - Pneumonitis [Recovered/Resolved]

NARRATIVE: CASE EVENT DATE: 20210723
